FAERS Safety Report 24451138 (Version 1)
Quarter: 2024Q4

REPORT INFORMATION
  Report Type: Spontaneous
  Country: US (occurrence: US)
  Receive Date: 20241017
  Receipt Date: 20241017
  Transmission Date: 20250115
  Serious: Yes (Other)
  Sender: ALEXION PHARMACEUTICALS
  Company Number: US-ASTRAZENECA-202409USA011325US

PATIENT

DRUGS (6)
  1. FASLODEX [Suspect]
     Active Substance: FULVESTRANT
     Indication: Breast cancer female
     Dosage: UNK
  2. FASLODEX [Suspect]
     Active Substance: FULVESTRANT
     Dosage: UNK
  3. FASLODEX [Suspect]
     Active Substance: FULVESTRANT
     Dosage: UNK
  4. FASLODEX [Suspect]
     Active Substance: FULVESTRANT
     Dosage: UNK
  5. TUKYSA [Concomitant]
     Active Substance: TUCATINIB
  6. XELODA [Concomitant]
     Active Substance: CAPECITABINE

REACTIONS (1)
  - Disease progression [Unknown]
